FAERS Safety Report 10174347 (Version 1)
Quarter: 2014Q2

REPORT INFORMATION
  Report Type: Spontaneous
  Country: US (occurrence: None)
  Receive Date: 20140514
  Receipt Date: 20140514
  Transmission Date: 20141212
  Serious: No
  Sender: FDA-Public Use
  Company Number: None

PATIENT
  Age: 56 Year
  Sex: Male

DRUGS (6)
  1. ATRIPLA [Suspect]
     Dosage: 1 TABLET DAILY ORAL
     Route: 048
     Dates: start: 20091028
  2. PRAVASTATIN [Concomitant]
  3. RASPBERRY KETONES [Concomitant]
  4. CENSA [Concomitant]
  5. MELOXICAM [Concomitant]
  6. PANTOPRAZOLE [Concomitant]

REACTIONS (1)
  - Pancreatitis [None]
